FAERS Safety Report 21311356 (Version 1)
Quarter: 2022Q3

REPORT INFORMATION
  Report Type: Report from Study
  Country: US (occurrence: US)
  Receive Date: 20220909
  Receipt Date: 20220909
  Transmission Date: 20221027
  Serious: Yes (Other)
  Sender: FDA-Public Use
  Company Number: US-BRISTOL-MYERS SQUIBB COMPANY-2022-025526

PATIENT
  Age: 75 Year
  Sex: Female
  Weight: 68.0 kg

DRUGS (8)
  1. REVLIMID [Suspect]
     Active Substance: LENALIDOMIDE
     Indication: Plasma cell myeloma
     Dosage: DOSE: 15 MILLIGRAM, FREQ: DAILY
     Route: 048
     Dates: start: 2011
  2. REVLIMID [Suspect]
     Active Substance: LENALIDOMIDE
     Route: 048
  3. REVLIMID [Suspect]
     Active Substance: LENALIDOMIDE
     Route: 048
  4. ASPIRIN [Concomitant]
     Active Substance: ASPIRIN
     Indication: Product used for unknown indication
     Dosage: DOSE: 81 MILLIGRAM
     Route: 065
  5. NIACIN [Concomitant]
     Active Substance: NIACIN
     Indication: Product used for unknown indication
     Dosage: DOSE: 100 MILLIGRAM
     Route: 065
  6. BIOTIN [Concomitant]
     Active Substance: BIOTIN
     Indication: Product used for unknown indication
     Dosage: DOSE: 1 MILLIGRAM
     Route: 065
  7. MAGNESIUM [MAGNESIUM MALATE] [Concomitant]
     Indication: Product used for unknown indication
     Dosage: DOSE: 1 MILLIGRAM
     Route: 065
  8. ACIDOPHILUS [Concomitant]
     Active Substance: LACTOBACILLUS ACIDOPHILUS
     Indication: Product used for unknown indication
     Dosage: ACIDOPHILUS IOOMM CELL CAPSULE
     Route: 065

REACTIONS (8)
  - Herpes zoster [Unknown]
  - Myalgia [Unknown]
  - Cardiac murmur [Unknown]
  - Anxiety [Unknown]
  - Infection [Unknown]
  - Atrial flutter [Unknown]
  - Diarrhoea [Unknown]
  - Nerve injury [Unknown]

NARRATIVE: CASE EVENT DATE: 20170101
